FAERS Safety Report 14831382 (Version 2)
Quarter: 2018Q2

REPORT INFORMATION
  Report Type: Spontaneous
  Country: US (occurrence: US)
  Receive Date: 20180501
  Receipt Date: 20180512
  Transmission Date: 20180711
  Serious: No
  Sender: FDA-Public Use
  Company Number: US-JNJFOC-20180403004

PATIENT
  Age: 24 Year
  Sex: Female
  Weight: 52.16 kg

DRUGS (3)
  1. ORTHO TRI CYCLEN LO [Suspect]
     Active Substance: ETHINYL ESTRADIOL\NORGESTIMATE
     Indication: POLYCYSTIC OVARIES
     Route: 048
  2. TRINESSA LO [Suspect]
     Active Substance: ETHINYL ESTRADIOL\NORGESTIMATE
     Indication: POLYCYSTIC OVARIES
     Route: 065
  3. SPIRONOLACTONE. [Concomitant]
     Active Substance: SPIRONOLACTONE
     Indication: POLYCYSTIC OVARIES
     Route: 065

REACTIONS (3)
  - Product use in unapproved indication [Unknown]
  - Drug dose omission [Unknown]
  - Off label use [Unknown]

NARRATIVE: CASE EVENT DATE: 20180401
